FAERS Safety Report 4531661-4 (Version None)
Quarter: 2004Q4

REPORT INFORMATION
  Report Type: 
  Country: None (occurrence: None)
  Receive Date: 20041216
  Receipt Date: 20041130
  Transmission Date: 20050328
  Serious: Yes (Other)
  Sender: FDA-Public Use
  Company Number: USA041184821

PATIENT
  Age: 37 Year
  Sex: Female

DRUGS (2)
  1. CYMBALTA [Suspect]
     Indication: DEPRESSION
     Dosage: 30 MG/1 DAY
     Dates: start: 20041115, end: 20041119
  2. EFFEXOR [Concomitant]

REACTIONS (5)
  - EYE SWELLING [None]
  - HAEMORRHAGE [None]
  - LOCALISED INFECTION [None]
  - PRURITUS [None]
  - RASH ERYTHEMATOUS [None]
